FAERS Safety Report 23892119 (Version 1)
Quarter: 2024Q2

REPORT INFORMATION
  Report Type: Spontaneous
  Country: US (occurrence: None)
  Receive Date: 20240524
  Receipt Date: 20240524
  Transmission Date: 20240715
  Serious: No
  Sender: FDA-Public Use
  Company Number: US-ROCHE-3374324

PATIENT

DRUGS (2)
  1. ACTEMRA [Suspect]
     Active Substance: TOCILIZUMAB
     Indication: Product used for unknown indication
     Dosage: LAST DOSE SHIPPED IN MAR/2023
     Route: 065
  2. KEVZARA [Concomitant]
     Active Substance: SARILUMAB
     Dates: start: 202304

REACTIONS (1)
  - Pruritus [Unknown]
